FAERS Safety Report 9058346 (Version 1)
Quarter: 2013Q1

REPORT INFORMATION
  Report Type: Spontaneous
  Country: US (occurrence: None)
  Receive Date: 20130205
  Receipt Date: 20130205
  Transmission Date: 20140127
  Serious: Yes (Hospitalization)
  Sender: FDA-Public Use
  Company Number: None

PATIENT
  Age: 63 Year
  Sex: Male
  Weight: 90.72 kg

DRUGS (1)
  1. AMITRIPTYLINE [Suspect]
     Indication: BLOOD URIC ACID INCREASED
     Route: 048
     Dates: start: 20130129, end: 20130130

REACTIONS (11)
  - Drug dispensing error [None]
  - Wrong drug administered [None]
  - Lethargy [None]
  - Asthenia [None]
  - Asthenia [None]
  - Dizziness [None]
  - Dysarthria [None]
  - Somnolence [None]
  - Medication error [None]
  - Feeling abnormal [None]
  - Transient ischaemic attack [None]
